FAERS Safety Report 24044983 (Version 1)
Quarter: 2024Q3

REPORT INFORMATION
  Report Type: Spontaneous
  Country: CN (occurrence: CN)
  Receive Date: 20240703
  Receipt Date: 20240703
  Transmission Date: 20241016
  Serious: Yes (Death, Other)
  Sender: STRIDES
  Company Number: CN-STRIDES ARCOLAB LIMITED-2024SP007839

PATIENT
  Age: 60 Year
  Sex: Male

DRUGS (11)
  1. PREDNISOLONE [Suspect]
     Active Substance: PREDNISOLONE
     Indication: Diffuse large B-cell lymphoma
     Dosage: 100 MILLIGRAM, CYCLICAL ON DAY 2?6 EVERY 21 DAYS (PART OF R-CHOP CHEMOTHERAPY REGIMEN)
     Route: 065
  2. DOXORUBICIN [Suspect]
     Active Substance: DOXORUBICIN
     Indication: Diffuse large B-cell lymphoma
     Dosage: 78.2 MILLIGRAM, CYCLICAL ON DAY 2 (PART OF R-CHOP CHEMOTHERAPY REGIMEN)
     Route: 065
  3. RITUXIMAB [Suspect]
     Active Substance: RITUXIMAB
     Indication: Diffuse large B-cell lymphoma
     Dosage: 586 MILLIGRAM, CYCLICAL ON DAY 1 (PART OF R-CHOP CHEMOTHERAPY REGIMEN)
     Route: 065
  4. CYCLOPHOSPHAMIDE [Suspect]
     Active Substance: CYCLOPHOSPHAMIDE
     Indication: Diffuse large B-cell lymphoma
     Dosage: 1.17 GRAM, CYCLICAL ON DAY 2 (PART OF R-CHOP CHEMOTHERAPY REGIMEN)
     Route: 065
  5. VINCRISTINE [Suspect]
     Active Substance: VINCRISTINE
     Indication: Diffuse large B-cell lymphoma
     Dosage: 2 MILLIGRAM, CYCLICAL ON DAY 2 (PART OF R-CHOP CHEMOTHERAPY REGIMEN)
     Route: 065
  6. ENZASTAURIN [Suspect]
     Active Substance: ENZASTAURIN
     Indication: Diffuse large B-cell lymphoma
     Dosage: 500 MILLIGRAM, QD
     Route: 065
  7. GEMCITABINE [Suspect]
     Active Substance: GEMCITABINE
     Indication: Diffuse large B-cell lymphoma
     Dosage: 1.6 GRAM (PART OF GEMOX REGIMEN)
     Route: 065
  8. OXALIPLATIN [Suspect]
     Active Substance: OXALIPLATIN
     Indication: Diffuse large B-cell lymphoma
     Dosage: 150 MILLIGRAM ON DAY 1 EVERY 14 DAYS (PART OF GEMOX REGIMEN)
     Route: 065
  9. LENALIDOMIDE [Suspect]
     Active Substance: LENALIDOMIDE
     Indication: Diffuse large B-cell lymphoma
     Dosage: 25 MILLIGRAM ON DAY 1-14 EVERY 21 DAYS.
     Route: 065
  10. SELINEXOR [Suspect]
     Active Substance: SELINEXOR
     Indication: Diffuse large B-cell lymphoma
     Dosage: 60 MILLIGRAM, BID (WITH FOOD)
     Route: 065
  11. SINTILIMAB [Suspect]
     Active Substance: SINTILIMAB
     Indication: Diffuse large B-cell lymphoma refractory
     Dosage: UNK
     Route: 065

REACTIONS (3)
  - Death [Fatal]
  - Drug ineffective [Unknown]
  - Malignant neoplasm progression [Unknown]
